FAERS Safety Report 4558332-2 (Version None)
Quarter: 2005Q1

REPORT INFORMATION
  Report Type: 
  Country: None (occurrence: None)
  Receive Date: 20050121
  Receipt Date: 20040302
  Transmission Date: 20050727
  Serious: No
  Sender: FDA-Public Use
  Company Number: US-BRISTOL-MYERS SQUIBB COMPANY-12523064

PATIENT
  Age: 18 Month
  Sex: Female
  Weight: 9 kg

DRUGS (2)
  1. CEFZIL [Suspect]
     Indication: CONJUNCTIVITIS
     Dosage: DOSAGE FORM-TEASPOON
     Route: 048
     Dates: start: 20040223, end: 20040301
  2. CEFZIL [Suspect]
     Indication: EAR INFECTION
     Dosage: DOSAGE FORM-TEASPOON
     Route: 048
     Dates: start: 20040223, end: 20040301

REACTIONS (3)
  - ARTHRALGIA [None]
  - EAR PAIN [None]
  - RASH MACULAR [None]
